FAERS Safety Report 5478161-5 (Version None)
Quarter: 2007Q4

REPORT INFORMATION
  Report Type: 
  Country: None (occurrence: None)
  Receive Date: 20071005
  Receipt Date: 20070202
  Transmission Date: 20080405
  Serious: No
  Sender: FDA-Public Use
  Company Number: US-BRISTOL-MYERS SQUIBB COMPANY-13667050

PATIENT
  Sex: Female
  Weight: 82 kg

DRUGS (3)
  1. AVAPRO [Suspect]
     Indication: HYPERTENSION
  2. SYNTHROID [Concomitant]
  3. ZITHROMAX [Concomitant]

REACTIONS (6)
  - CONJUNCTIVITIS [None]
  - ERYTHEMA NODOSUM [None]
  - OEDEMA [None]
  - RESPIRATORY TRACT CONGESTION [None]
  - WEIGHT INCREASED [None]
  - WHEEZING [None]
